FAERS Safety Report 8868769 (Version 1)
Quarter: 2012Q4

REPORT INFORMATION
  Report Type: 
  Country: US (occurrence: US)
  Receive Date: 20121026
  Receipt Date: 20121026
  Transmission Date: 20130627
  Serious: No
  Sender: FDA-Public Use
  Company Number: US-AMGEN-USASP2012047620

PATIENT
  Age: 64 Year
  Sex: Female
  Weight: 80 kg

DRUGS (9)
  1. ENBREL [Suspect]
     Indication: PRODUCT USED FOR UNKNOWN INDICATION
     Dosage: 50 mg, qwk
     Route: 058
  2. RESTASIS [Concomitant]
     Dosage: 0.05 %, UNK
  3. PREMARIN [Concomitant]
     Dosage: 0.625 mg, UNK
  4. DIOVAN [Concomitant]
     Dosage: 160 mg, UNK
  5. ARAVA [Concomitant]
     Dosage: 10 mg, UNK
  6. SIMVASTATIN [Concomitant]
     Dosage: 10 mg, UNK
  7. TOPROL [Concomitant]
     Dosage: 100 mg, UNK
  8. ACYCLOVIR                          /00587301/ [Concomitant]
     Dosage: 200/5 ml, UNK
  9. LOTEMAX [Concomitant]
     Dosage: 0.5 %, UNK

REACTIONS (1)
  - Abdominal distension [Unknown]
